FAERS Safety Report 7123779-7 (Version None)
Quarter: 2010Q4

REPORT INFORMATION
  Report Type: 
  Country: None (occurrence: None)
  Receive Date: 20101125
  Receipt Date: 20101115
  Transmission Date: 20110411
  Serious: Yes (Hospitalization, Other)
  Sender: FDA-Public Use
  Company Number: PHHY2010VE77859

PATIENT
  Sex: Female

DRUGS (3)
  1. ACLASTA [Suspect]
     Indication: OSTEOPOROSIS
     Dosage: 5 MG/YEAR
     Route: 042
     Dates: start: 20080101
  2. EUTHYROX [Concomitant]
  3. METFORMINE ^MERCK^ [Concomitant]

REACTIONS (4)
  - HYPERINSULINISM [None]
  - SPINAL DISORDER [None]
  - SURGERY [None]
  - THYROIDITIS [None]
